FAERS Safety Report 6955961-3 (Version None)
Quarter: 2010Q3

REPORT INFORMATION
  Report Type: 
  Country: None (occurrence: None)
  Receive Date: 20100830
  Receipt Date: 20100817
  Transmission Date: 20110219
  Serious: No
  Sender: FDA-Public Use
  Company Number: US-B.I. PHARMACEUTICALS,INC./RIDGEFIELD-2010-BP-09341BP

PATIENT
  Age: 91 Year
  Sex: Female

DRUGS (2)
  1. AGGRENOX [Suspect]
     Indication: CARDIOVASCULAR DISORDER
     Route: 048
     Dates: start: 20100701
  2. INSULIN [Concomitant]
     Indication: DIABETES MELLITUS

REACTIONS (4)
  - EAR DISORDER [None]
  - HEADACHE [None]
  - HEARING IMPAIRED [None]
  - NAUSEA [None]
